FAERS Safety Report 9166358 (Version 1)
Quarter: 2013Q1

REPORT INFORMATION
  Report Type: Report from Study
  Country: MX (occurrence: MX)
  Receive Date: 20130315
  Receipt Date: 20130315
  Transmission Date: 20140127
  Serious: Yes (Death)
  Sender: FDA-Public Use
  Company Number: MX-AMGEN-MEXNI2013018368

PATIENT
  Age: 64 Year
  Sex: Male
  Weight: 78 kg

DRUGS (1)
  1. FILGRASTIM [Suspect]
     Indication: NEUTROPENIA
     Dosage: 300 MUG, CYCLICAL
     Route: 065

REACTIONS (2)
  - Febrile neutropenia [Fatal]
  - Neutropenia [Unknown]
